FAERS Safety Report 9438498 (Version 2)
Quarter: 2013Q4

REPORT INFORMATION
  Report Type: Spontaneous
  Country: CA (occurrence: CA)
  Receive Date: 20130802
  Receipt Date: 20131120
  Transmission Date: 20140711
  Serious: Yes (Other)
  Sender: FDA-Public Use
  Company Number: CA-GLAXOSMITHKLINE-A1006970A

PATIENT
  Age: 59 Year
  Sex: Female
  Weight: 86.4 kg

DRUGS (6)
  1. ADVAIR [Suspect]
     Indication: CHRONIC OBSTRUCTIVE PULMONARY DISEASE
     Dosage: 1PUFF TWICE PER DAY
     Route: 055
     Dates: start: 201208
  2. SYNTHROID [Concomitant]
  3. CYTOMEL [Concomitant]
  4. ATROVENT [Concomitant]
  5. VENTOLIN [Concomitant]
  6. PREDNISONE [Concomitant]

REACTIONS (13)
  - Lower respiratory tract infection [Recovering/Resolving]
  - Productive cough [Recovering/Resolving]
  - Increased upper airway secretion [Recovering/Resolving]
  - Sputum retention [Recovering/Resolving]
  - Wheezing [Recovering/Resolving]
  - Dyspnoea [Unknown]
  - Dysphonia [Unknown]
  - Dysphonia [Unknown]
  - Headache [Unknown]
  - Peak expiratory flow rate decreased [Unknown]
  - Overdose [Unknown]
  - Ear infection [Recovering/Resolving]
  - Chronic obstructive pulmonary disease [Recovered/Resolved]
